FAERS Safety Report 7250495-3 (Version None)
Quarter: 2011Q1

REPORT INFORMATION
  Report Type: 
  Country: None (occurrence: None)
  Receive Date: 20110128
  Receipt Date: 20110118
  Transmission Date: 20110831
  Serious: Yes (Hospitalization)
  Sender: FDA-Public Use
  Company Number: US-ACTELION-A-US2010-39356

PATIENT

DRUGS (12)
  1. PHENERGAN [Concomitant]
  2. DIGOXIN [Concomitant]
  3. LYRICA [Concomitant]
  4. DIOVAN [Concomitant]
  5. ASPIRIN [Concomitant]
  6. NYSTATIN [Concomitant]
  7. PLAVIX [Concomitant]
  8. BOSENTAN TABLET UNKNOWN US MG [Suspect]
     Indication: PULMONARY ARTERIAL HYPERTENSION
     Dosage: UNK
     Route: 048
     Dates: start: 20090327
  9. ZOFRAN [Concomitant]
  10. COENZYME Q10 [Concomitant]
  11. CELEXA [Concomitant]
  12. LOVASTATIN [Concomitant]

REACTIONS (4)
  - BILE DUCT CANCER [None]
  - ALANINE AMINOTRANSFERASE INCREASED [None]
  - BLOOD ALKALINE PHOSPHATASE INCREASED [None]
  - LIVER FUNCTION TEST ABNORMAL [None]
